FAERS Safety Report 24295651 (Version 1)
Quarter: 2024Q3

REPORT INFORMATION
  Report Type: Spontaneous
  Country: IR (occurrence: IR)
  Receive Date: 20240908
  Receipt Date: 20240908
  Transmission Date: 20241016
  Serious: Yes (Other)
  Sender: Teyro Labs
  Company Number: IR-TEYRO-2024-TY-000533

PATIENT
  Age: 21 Year
  Sex: Male

DRUGS (4)
  1. CAPECITABINE [Suspect]
     Active Substance: CAPECITABINE
     Indication: Adenocarcinoma of colon
     Dosage: 1000 MG/M2 ORALLY TWICE DAILY ON DAYS 1-14, EIGHT SESSIONS AT 21-DAY INTERVALS
     Route: 048
     Dates: start: 2023, end: 202311
  2. CAPECITABINE [Suspect]
     Active Substance: CAPECITABINE
     Indication: Adenocarcinoma of colon
  3. OXALIPLATIN [Suspect]
     Active Substance: OXALIPLATIN
     Indication: Adenocarcinoma of colon
     Dosage: OXALIPLATIN 130 MG/M2 IV ON DAY 1
     Route: 042
     Dates: start: 2023, end: 202311
  4. OXALIPLATIN [Suspect]
     Active Substance: OXALIPLATIN
     Indication: Adenocarcinoma of colon

REACTIONS (1)
  - Cardiac haemangioma benign [Unknown]
